FAERS Safety Report 21407408 (Version 5)
Quarter: 2022Q4

REPORT INFORMATION
  Report Type: Spontaneous
  Country: CO (occurrence: CO)
  Receive Date: 20221004
  Receipt Date: 20221121
  Transmission Date: 20230112
  Serious: Yes (Other)
  Sender: FDA-Public Use
  Company Number: CO-PFIZER INC-PV202200061830

PATIENT
  Age: 65 Year
  Sex: Female

DRUGS (4)
  1. ENBREL [Suspect]
     Active Substance: ETANERCEPT
     Indication: Rheumatoid arthritis
     Dosage: 50 MG, WEEKLY
     Route: 058
     Dates: start: 2018
  2. ENBREL [Suspect]
     Active Substance: ETANERCEPT
     Indication: Osteoporosis
  3. ENBREL [Suspect]
     Active Substance: ETANERCEPT
     Indication: Spinal fracture
  4. ENBREL [Suspect]
     Active Substance: ETANERCEPT
     Indication: Lower limb fracture

REACTIONS (8)
  - Drug dose omission by device [Not Recovered/Not Resolved]
  - Device information output issue [Not Recovered/Not Resolved]
  - Malaise [Not Recovered/Not Resolved]
  - Therapeutic product effect incomplete [Unknown]
  - Pain [Not Recovered/Not Resolved]
  - Pain in extremity [Not Recovered/Not Resolved]
  - Illness [Not Recovered/Not Resolved]
  - Visual impairment [Not Recovered/Not Resolved]

NARRATIVE: CASE EVENT DATE: 20220801
